FAERS Safety Report 18104439 (Version 12)
Quarter: 2021Q3

REPORT INFORMATION
  Report Type: Report from Study
  Country: CA (occurrence: CA)
  Receive Date: 20200803
  Receipt Date: 20210716
  Transmission Date: 20211014
  Serious: Yes (Hospitalization, Other)
  Sender: FDA-Public Use
  Company Number: CA-JNJFOC-20200231620

PATIENT
  Age: 67 Year
  Sex: Female
  Weight: 79.6 kg

DRUGS (3)
  1. REMICADE [Suspect]
     Active Substance: INFLIXIMAB
     Route: 042
     Dates: start: 20210602, end: 20210623
  2. REMICADE [Suspect]
     Active Substance: INFLIXIMAB
     Indication: CROHN^S DISEASE
     Dosage: START DATE ALSO REPORTED AS 31?OCT?2013
     Route: 042
     Dates: start: 20130925
  3. REMICADE [Suspect]
     Active Substance: INFLIXIMAB
     Route: 042
     Dates: start: 2017

REACTIONS (9)
  - Lymphoma [Unknown]
  - Herpes zoster [Unknown]
  - Haematochezia [Recovered/Resolved]
  - Lung neoplasm malignant [Not Recovered/Not Resolved]
  - Constipation [Recovered/Resolved]
  - Viral upper respiratory tract infection [Recovered/Resolved]
  - Diverticulitis [Recovered/Resolved]
  - Inflammation [Not Recovered/Not Resolved]
  - Pain [Unknown]

NARRATIVE: CASE EVENT DATE: 2020
